FAERS Safety Report 16943325 (Version 2)
Quarter: 2020Q1

REPORT INFORMATION
  Report Type: Report from Study
  Country: CA (occurrence: CA)
  Receive Date: 20191022
  Receipt Date: 20200317
  Transmission Date: 20200409
  Serious: Yes (Other)
  Sender: FDA-Public Use
  Company Number: PHHY2013CA006481

PATIENT
  Age: 50 Year
  Sex: Male

DRUGS (8)
  1. SANDOSTATIN LAR DEPOT [Suspect]
     Active Substance: OCTREOTIDE ACETATE
     Indication: NEUROENDOCRINE TUMOUR
     Dosage: 30 MG, QMO (EVERY 4 WEEKS)
     Route: 030
     Dates: start: 20120606
  2. DIOVAN [Concomitant]
     Active Substance: VALSARTAN
     Indication: PRODUCT USED FOR UNKNOWN INDICATION
     Dosage: TWICE DAILY PER REQUIRED NEED
     Route: 065
  3. AFINITOR [Suspect]
     Active Substance: EVEROLIMUS
     Indication: NEUROENDOCRINE CARCINOMA METASTATIC
     Dosage: 10 MG, QD
     Route: 048
     Dates: start: 20150502
  4. NEXIUM [Concomitant]
     Active Substance: ESOMEPRAZOLE MAGNESIUM
     Indication: PRODUCT USED FOR UNKNOWN INDICATION
     Dosage: 40 MG, QD
     Route: 065
  5. OMEGA XL [Concomitant]
     Active Substance: DIETARY SUPPLEMENT
     Indication: PRODUCT USED FOR UNKNOWN INDICATION
     Dosage: UNK
     Route: 065
  6. SANDOSTATIN LAR DEPOT [Suspect]
     Active Substance: OCTREOTIDE ACETATE
     Dosage: 30 MG, QMO (EVERY 4 WEEKS)
     Route: 030
     Dates: start: 20120704
  7. NAPROSYN [Suspect]
     Active Substance: NAPROXEN
     Indication: ARTHRITIS
     Dosage: BID PRN
     Route: 065
  8. IBUPROFEN. [Concomitant]
     Active Substance: IBUPROFEN
     Indication: JOINT SWELLING
     Dosage: UNK
     Route: 065

REACTIONS (24)
  - Hypertension [Unknown]
  - Metastases to lymph nodes [Unknown]
  - Tooth infection [Recovered/Resolved]
  - Lethargy [Unknown]
  - Contusion [Recovering/Resolving]
  - Bone disorder [Unknown]
  - Arteriosclerosis [Unknown]
  - Benign prostatic hyperplasia [Unknown]
  - Malignant neoplasm progression [Unknown]
  - Intervertebral disc degeneration [Unknown]
  - Metastases to liver [Unknown]
  - Retroperitoneal lymphadenopathy [Unknown]
  - Spondylolisthesis [Unknown]
  - Renal failure [Unknown]
  - Stag horn calculus [Unknown]
  - Arthralgia [Unknown]
  - Bone cyst [Unknown]
  - Retroperitoneal mass [Unknown]
  - Blood creatinine increased [Unknown]
  - Lymphadenopathy [Unknown]
  - Hypokinesia [Unknown]
  - Abdominal discomfort [Unknown]
  - Flatulence [Unknown]
  - Arteriosclerosis coronary artery [Unknown]

NARRATIVE: CASE EVENT DATE: 20121219
